FAERS Safety Report 6204114-5 (Version None)
Quarter: 2009Q2

REPORT INFORMATION
  Report Type: 
  Country: None (occurrence: None)
  Receive Date: 20090526
  Receipt Date: 20090526
  Transmission Date: 20091009
  Serious: Yes (Other)
  Sender: FDA-Public Use
  Company Number: None

PATIENT
  Age: 37 Year
  Sex: Female
  Weight: 74.3899 kg

DRUGS (1)
  1. ZYRTEC [Suspect]
     Indication: HYPERSENSITIVITY
     Dosage: ONE 10 MG TABLET DAILY PO
     Route: 048
     Dates: start: 20090515, end: 20090524

REACTIONS (97)
  - ABDOMINAL DISTENSION [None]
  - ABDOMINAL PAIN UPPER [None]
  - ADVERSE EVENT [None]
  - AFFECT LABILITY [None]
  - AGEUSIA [None]
  - AGGRESSION [None]
  - AGITATION [None]
  - AMNESIA [None]
  - ANXIETY [None]
  - ARTHRITIS [None]
  - ASTHENIA [None]
  - ASTHMA [None]
  - BACK PAIN [None]
  - BREAST PAIN [None]
  - BRONCHITIS [None]
  - CHEST DISCOMFORT [None]
  - CHEST PAIN [None]
  - CHILLS [None]
  - CHROMATURIA [None]
  - CONFUSIONAL STATE [None]
  - CONSTIPATION [None]
  - CONTUSION [None]
  - COUGH [None]
  - DEPERSONALISATION [None]
  - DEPRESSION [None]
  - DISTURBANCE IN ATTENTION [None]
  - DIZZINESS [None]
  - DRY MOUTH [None]
  - DYSGEUSIA [None]
  - DYSPHONIA [None]
  - DYSPNOEA [None]
  - EAR PAIN [None]
  - EUPHORIC MOOD [None]
  - FACE OEDEMA [None]
  - FATIGUE [None]
  - FLATULENCE [None]
  - FLUSHING [None]
  - GASTRITIS [None]
  - GENERALISED OEDEMA [None]
  - HAEMORRHAGE [None]
  - HALLUCINATION [None]
  - HEADACHE [None]
  - HEART RATE INCREASED [None]
  - HEART RATE IRREGULAR [None]
  - HEPATIC FUNCTION ABNORMAL [None]
  - HOT FLUSH [None]
  - HYPERSENSITIVITY [None]
  - HYPERVENTILATION [None]
  - INCREASED APPETITE [None]
  - INJURY [None]
  - INSOMNIA [None]
  - LIBIDO DECREASED [None]
  - LIP SWELLING [None]
  - MALAISE [None]
  - MENTAL DISORDER [None]
  - MIGRAINE [None]
  - MOOD ALTERED [None]
  - MOUTH ULCERATION [None]
  - MUSCLE SPASMS [None]
  - MUSCLE TWITCHING [None]
  - MUSCULAR WEAKNESS [None]
  - MYALGIA [None]
  - NASAL POLYPS [None]
  - NAUSEA [None]
  - NERVOUSNESS [None]
  - NIGHTMARE [None]
  - OEDEMA [None]
  - OEDEMA MOUTH [None]
  - OEDEMA PERIPHERAL [None]
  - OROPHARYNGEAL PAIN [None]
  - OSTEOARTHRITIS [None]
  - OTOTOXICITY [None]
  - PAIN [None]
  - PALLOR [None]
  - PERIORBITAL OEDEMA [None]
  - PRURITUS [None]
  - PYREXIA [None]
  - RASH [None]
  - RESPIRATORY DISORDER [None]
  - RHINITIS [None]
  - SINUSITIS [None]
  - SLEEP DISORDER [None]
  - SOMNOLENCE [None]
  - STOMATITIS [None]
  - SWELLING FACE [None]
  - SWOLLEN TONGUE [None]
  - THINKING ABNORMAL [None]
  - TINNITUS [None]
  - TONGUE DISCOLOURATION [None]
  - TONGUE OEDEMA [None]
  - TREMOR [None]
  - UPPER RESPIRATORY TRACT INFECTION [None]
  - URTICARIA [None]
  - VERTIGO [None]
  - VISUAL FIELD DEFECT [None]
  - WEIGHT INCREASED [None]
  - WHEEZING [None]
